FAERS Safety Report 8074223-7 (Version None)
Quarter: 2012Q1

REPORT INFORMATION
  Report Type: 
  Country: None (occurrence: None)
  Receive Date: 20120119
  Receipt Date: 20120111
  Transmission Date: 20120608
  Serious: Yes (Life-Threatening, Hospitalization)
  Sender: FDA-Public Use
  Company Number: 2011SP053983

PATIENT
  Age: 30 Year
  Sex: Female
  Weight: 48 kg

DRUGS (2)
  1. PEG-INTRON [Suspect]
     Indication: HEPATITIS C
     Dosage: 80 MCG/QW;SC
     Route: 058
     Dates: start: 20110714, end: 20110830
  2. REBETOL [Suspect]
     Indication: HEPATITIS C
     Dosage: 600 MG;QD;PO
     Route: 048
     Dates: start: 20110714, end: 20110830

REACTIONS (5)
  - DEATH OF RELATIVE [None]
  - SUICIDE ATTEMPT [None]
  - DEPRESSIVE SYMPTOM [None]
  - FEMUR FRACTURE [None]
  - SPINAL COLUMN INJURY [None]
